FAERS Safety Report 5863591-X (Version None)
Quarter: 2008Q3

REPORT INFORMATION
  Report Type: 
  Country: None (occurrence: None)
  Receive Date: 20080828
  Receipt Date: 20080819
  Transmission Date: 20090109
  Serious: Yes (Other)
  Sender: FDA-Public Use
  Company Number: CA-PFIZER INC-2008015665

PATIENT
  Sex: Female
  Weight: 48.3 kg

DRUGS (1)
  1. PHARMORUBICIN [Suspect]

REACTIONS (2)
  - ACCIDENTAL EXPOSURE [None]
  - EYELID DISORDER [None]
